APPROVED DRUG PRODUCT: NUVARING
Active Ingredient: ETHINYL ESTRADIOL; ETONOGESTREL
Strength: 0.015MG/24HR;0.12MG/24HR
Dosage Form/Route: RING;VAGINAL
Application: N021187 | Product #001 | TE Code: AB
Applicant: ORGANON USA LLC A SUB OF ORGANON AND CO
Approved: Oct 3, 2001 | RLD: Yes | RS: Yes | Type: RX